FAERS Safety Report 4903481-X (Version None)
Quarter: 2006Q1

REPORT INFORMATION
  Report Type: 
  Country: None (occurrence: None)
  Receive Date: 20060203
  Receipt Date: 20060119
  Transmission Date: 20060701
  Serious: Yes (Other)
  Sender: FDA-Public Use
  Company Number: 2006000155

PATIENT

DRUGS (1)
  1. TARCEVA [Suspect]

REACTIONS (2)
  - BRAIN MASS [None]
  - CONVULSION [None]
